FAERS Safety Report 4961920-2 (Version None)
Quarter: 2006Q2

REPORT INFORMATION
  Report Type: 
  Country: None (occurrence: None)
  Receive Date: 20060404
  Receipt Date: 20050808
  Transmission Date: 20061013
  Serious: Yes (Hospitalization)
  Sender: FDA-Public Use
  Company Number: US-MERCK-0508USA01848

PATIENT
  Age: 50 Year
  Sex: Female
  Weight: 89 kg

DRUGS (20)
  1. PLAVIX [Concomitant]
     Route: 065
     Dates: start: 20040330
  2. PREMARIN [Concomitant]
     Route: 048
  3. VIOXX [Suspect]
     Indication: ARTHRALGIA
     Route: 048
     Dates: start: 20001018, end: 20040901
  4. ASPIRIN [Concomitant]
     Route: 065
  5. COZAAR [Concomitant]
     Route: 048
     Dates: end: 20020416
  6. NORVASC [Concomitant]
     Route: 065
     Dates: start: 20020416
  7. TOPROL-XL [Concomitant]
     Route: 048
     Dates: end: 20041026
  8. METOPROLOL [Concomitant]
     Route: 048
     Dates: start: 20041026
  9. DIOVAN [Concomitant]
     Route: 048
     Dates: end: 20041026
  10. LISINOPRIL [Concomitant]
     Route: 048
     Dates: start: 20041026
  11. LIPITOR [Concomitant]
     Route: 048
  12. MONOPRIL [Concomitant]
     Route: 048
  13. PREMPRO [Concomitant]
     Route: 048
  14. HYDROCHLOROTHIAZIDE [Concomitant]
     Route: 048
  15. XANAX [Concomitant]
     Route: 065
  16. VITAMINS (UNSPECIFIED) [Concomitant]
     Route: 065
  17. ECOTRIN [Concomitant]
     Route: 048
  18. COUMADIN [Concomitant]
     Route: 048
     Dates: end: 20030416
  19. COUMADIN [Concomitant]
     Route: 048
     Dates: end: 20030416
  20. PLAVIX [Concomitant]
     Route: 048
     Dates: end: 20040329

REACTIONS (17)
  - AMNESIA [None]
  - ANAEMIA POSTOPERATIVE [None]
  - AORTIC THROMBOSIS [None]
  - BUNDLE BRANCH BLOCK LEFT [None]
  - CARDIAC MURMUR [None]
  - CONTUSION [None]
  - CORONARY ARTERY DISEASE [None]
  - DRUG INTOLERANCE [None]
  - DYSPNOEA EXERTIONAL [None]
  - MITRAL VALVE INCOMPETENCE [None]
  - OEDEMA PERIPHERAL [None]
  - PAIN IN EXTREMITY [None]
  - PERIPHERAL ARTERIAL OCCLUSIVE DISEASE [None]
  - PNEUMONIA [None]
  - TENDONITIS [None]
  - TRICUSPID VALVE INCOMPETENCE [None]
  - WEIGHT INCREASED [None]
